FAERS Safety Report 5748699-1 (Version None)
Quarter: 2008Q2

REPORT INFORMATION
  Report Type: 
  Country: None (occurrence: None)
  Receive Date: 20080521
  Receipt Date: 20080512
  Transmission Date: 20081010
  Serious: Yes (Other)
  Sender: FDA-Public Use
  Company Number: GXKR2008GB04398

PATIENT
  Sex: Female

DRUGS (1)
  1. LISINOPRIL [Suspect]
     Dosage: 2.5 MG, ORAL
     Route: 048
     Dates: start: 20080424, end: 20080426

REACTIONS (2)
  - MOUTH ULCERATION [None]
  - OROPHARYNGEAL BLISTERING [None]
